FAERS Safety Report 4723482-4 (Version None)
Quarter: 2005Q3

REPORT INFORMATION
  Report Type: 
  Country: None (occurrence: None)
  Receive Date: 20050725
  Receipt Date: 20050719
  Transmission Date: 20060218
  Serious: Yes (Hospitalization)
  Sender: FDA-Public Use
  Company Number: FR-GLAXOSMITHKLINE-B0388218A

PATIENT
  Age: 76 Year
  Sex: Female
  Weight: 70 kg

DRUGS (7)
  1. ZOVIRAX [Suspect]
     Indication: HEPATIC ENCEPHALOPATHY
     Dosage: 700MG THREE TIMES PER DAY
     Route: 042
     Dates: start: 20050513, end: 20050516
  2. AUGMENTIN '125' [Suspect]
     Dosage: 1G THREE TIMES PER DAY
     Route: 048
     Dates: start: 20050513, end: 20050516
  3. OFLOCET [Suspect]
     Dosage: 200MG TWICE PER DAY
     Route: 048
     Dates: start: 20050513, end: 20050516
  4. DIAMICRON [Suspect]
     Dosage: 2UNIT PER DAY
     Route: 048
     Dates: end: 20050516
  5. TAHOR [Suspect]
     Dosage: 1UNIT PER DAY
     Route: 048
     Dates: end: 20050516
  6. DEPAKENE [Suspect]
     Route: 048
     Dates: start: 20050613, end: 20050616
  7. ANTALGIC [Concomitant]
     Dates: start: 20050509

REACTIONS (5)
  - CHOLESTASIS [None]
  - CYTOLYTIC HEPATITIS [None]
  - HEPATIC ENZYME INCREASED [None]
  - HYPERBILIRUBINAEMIA [None]
  - LIPASE INCREASED [None]
